FAERS Safety Report 9214785 (Version 1)
Quarter: 2013Q2

REPORT INFORMATION
  Report Type: Spontaneous
  Country: US (occurrence: US)
  Receive Date: 20130405
  Receipt Date: 20130405
  Transmission Date: 20140414
  Serious: Yes (Hospitalization)
  Sender: FDA-Public Use
  Company Number: US-ABBOTT-13P-163-1070372-00

PATIENT
  Sex: Female
  Weight: 54.48 kg

DRUGS (1)
  1. CREON [Suspect]
     Indication: PANCREATITIS CHRONIC
     Dosage: 4 WITH EACH MEAL, 2 WITH SNACK
     Dates: start: 2011

REACTIONS (6)
  - Pancreatitis [Recovering/Resolving]
  - Bile duct stenosis [Recovering/Resolving]
  - Vomiting [Recovered/Resolved]
  - Diarrhoea [Recovered/Resolved]
  - Blood potassium decreased [Recovered/Resolved]
  - Malnutrition [Recovering/Resolving]
